FAERS Safety Report 5016458-3 (Version None)
Quarter: 2006Q2

REPORT INFORMATION
  Report Type: 
  Country: None (occurrence: None)
  Receive Date: 20060602
  Receipt Date: 20060531
  Transmission Date: 20061013
  Serious: Yes (Other)
  Sender: FDA-Public Use
  Company Number: US-AVENTIS-200614772US

PATIENT
  Sex: Male

DRUGS (2)
  1. TAXOTERE [Suspect]
  2. DEXAMETHASONE TAB [Concomitant]
     Indication: PREMEDICATION

REACTIONS (3)
  - CAPILLARY LEAK SYNDROME [None]
  - GENERALISED OEDEMA [None]
  - THERAPY NON-RESPONDER [None]
